FAERS Safety Report 6251335-1 (Version None)
Quarter: 2009Q2

REPORT INFORMATION
  Report Type: 
  Country: None (occurrence: None)
  Receive Date: 20090630
  Receipt Date: 20090623
  Transmission Date: 20091009
  Serious: Yes (Other)
  Sender: FDA-Public Use
  Company Number: A0739971A

PATIENT
  Sex: Male
  Weight: 3.2 kg

DRUGS (6)
  1. PAXIL [Suspect]
     Indication: ANXIETY
     Dosage: 20MG PER DAY
     Dates: start: 19970917
  2. PAXIL CR [Suspect]
     Indication: DRUG USE FOR UNKNOWN INDICATION
  3. VITAMIN TAB [Concomitant]
  4. XANAX [Concomitant]
  5. KLONOPIN [Concomitant]
  6. DEMEROL [Concomitant]

REACTIONS (9)
  - ASTHMA [None]
  - COLLAPSE OF LUNG [None]
  - DRUG EXPOSURE DURING PREGNANCY [None]
  - HYPOTENSION [None]
  - JAUNDICE [None]
  - LUNG DISORDER [None]
  - PREMATURE BABY [None]
  - RESPIRATORY DISTRESS [None]
  - SHOCK [None]
